FAERS Safety Report 10100513 (Version 5)
Quarter: 2014Q2

REPORT INFORMATION
  Report Type: Spontaneous
  Country: US (occurrence: US)
  Receive Date: 20140423
  Receipt Date: 20140605
  Transmission Date: 20141212
  Serious: Yes (Death, Hospitalization)
  Sender: FDA-Public Use
  Company Number: US-GLAXOSMITHKLINE-A1067335A

PATIENT
  Age: 53 Year
  Sex: Female

DRUGS (11)
  1. ARIXTRA [Suspect]
     Indication: THROMBOSIS PROPHYLAXIS
     Dosage: 7.5MG SINGLE DOSE
     Route: 058
     Dates: start: 20140108, end: 20140416
  2. LANTUS [Concomitant]
  3. OMEPRAZOLE [Concomitant]
  4. TRAZODONE [Concomitant]
  5. METOPROLOL [Concomitant]
  6. NOVOLOG [Concomitant]
  7. HUMULIN R [Concomitant]
  8. CITALOPRAM [Concomitant]
  9. HCTZ [Concomitant]
  10. AMLODIPINE [Concomitant]
  11. CHLOROCHIN [Concomitant]

REACTIONS (9)
  - Haemorrhage [Fatal]
  - Investigation [Not Recovered/Not Resolved]
  - Blood urine present [Unknown]
  - Tumour rupture [Unknown]
  - Vascular rupture [Unknown]
  - Neoplasm malignant [Fatal]
  - Epistaxis [Unknown]
  - Mouth haemorrhage [Unknown]
  - Vena cava thrombosis [Unknown]
